FAERS Safety Report 18476527 (Version 1)
Quarter: 2020Q4

REPORT INFORMATION
  Report Type: Spontaneous
  Country: US (occurrence: US)
  Receive Date: 20201107
  Receipt Date: 20201107
  Transmission Date: 20210114
  Serious: Yes (Hospitalization, Other)
  Sender: FDA-Public Use
  Company Number: US-MACLEODS PHARMACEUTICALS US LTD-MAC2020028976

PATIENT

DRUGS (2)
  1. QUETIAPINE 150 MG [Suspect]
     Active Substance: QUETIAPINE
     Indication: SCHIZOPHRENIA
     Dosage: 150 MILLIGRAM, QD, AT BEDTIME
     Route: 065
  2. QUETIAPINE 150 MG [Suspect]
     Active Substance: QUETIAPINE
     Indication: DEMENTIA

REACTIONS (2)
  - Hypothermia [Recovered/Resolved]
  - Hypoglycaemia [Recovered/Resolved]
